FAERS Safety Report 14142467 (Version 2)
Quarter: 2017Q4

REPORT INFORMATION
  Report Type: Spontaneous
  Country: BR (occurrence: BR)
  Receive Date: 20171030
  Receipt Date: 20171113
  Transmission Date: 20180321
  Serious: Yes (Other)
  Sender: FDA-Public Use
  Company Number: BR-TAKEDA-2017TUS022654

PATIENT
  Age: 61 Year
  Sex: Female

DRUGS (1)
  1. BRINTELLIX [Suspect]
     Active Substance: VORTIOXETINE HYDROBROMIDE
     Indication: PRODUCT USED FOR UNKNOWN INDICATION
     Dosage: 10 MG, UNK
     Route: 065

REACTIONS (7)
  - Head injury [Recovering/Resolving]
  - Swelling face [Not Recovered/Not Resolved]
  - Erythema [Not Recovered/Not Resolved]
  - Pneumonia [Recovering/Resolving]
  - Abnormal dreams [Recovering/Resolving]
  - Weight increased [Unknown]
  - Fall [Recovering/Resolving]
